FAERS Safety Report 7934127-4 (Version None)
Quarter: 2011Q4

REPORT INFORMATION
  Report Type: 
  Country: None (occurrence: None)
  Receive Date: 20111116
  Receipt Date: 20111031
  Transmission Date: 20120403
  Serious: Yes (Hospitalization, Other)
  Sender: FDA-Public Use
  Company Number: DSA_48168_2011

PATIENT
  Age: 67 Year
  Sex: Female

DRUGS (6)
  1. CANDESARTAN CILEXETIL [Suspect]
     Indication: HYPERTENSION
     Dosage: 4 MG, QD, ORAL
     Route: 048
     Dates: start: 20101205, end: 20110104
  2. LAC-B [Concomitant]
  3. PHENOBARBITAL TAB [Suspect]
     Indication: BRAIN CONTUSION
     Dosage: 120MG QD, ORAL
     Route: 048
     Dates: start: 20101205, end: 20110104
  4. FAMOTIDINE [Suspect]
     Indication: BRAIN CONTUSION
     Dosage: 10 MG, BID, ORAL
     Route: 048
     Dates: start: 20101203, end: 20110105
  5. MERISLON (MERISLON-BETAHISTINE MESILATE) 6 MG [Suspect]
     Indication: DIZZINESS
     Dosage: 6 MG, TID, ORAL
     Route: 048
     Dates: start: 20101205, end: 20110105
  6. ENALAPRIL MALEATE [Suspect]
     Indication: HYPERTENSION
     Dosage: 10 MG, QD ORAL
     Route: 048
     Dates: start: 20101209, end: 20110104

REACTIONS (2)
  - DRUG ERUPTION [None]
  - LIVER DISORDER [None]
